FAERS Safety Report 5917535-2 (Version None)
Quarter: 2008Q4

REPORT INFORMATION
  Report Type: 
  Country: None (occurrence: None)
  Receive Date: 20081014
  Receipt Date: 20081008
  Transmission Date: 20090506
  Serious: Yes (Hospitalization)
  Sender: FDA-Public Use
  Company Number: SE-AVENTIS-200819596GDDC

PATIENT
  Age: 65 Year
  Sex: Female

DRUGS (5)
  1. ARAVA [Suspect]
     Indication: RHEUMATOID ARTHRITIS
     Route: 048
     Dates: start: 20060101
  2. METHOTREXATE [Suspect]
     Indication: RHEUMATOID ARTHRITIS
     Dosage: DOSE: UNK
     Route: 048
     Dates: start: 20030101, end: 20060101
  3. BEHEPAN [Concomitant]
     Dosage: DOSE: UNK
     Route: 048
  4. PREDNISOLONE [Concomitant]
     Dosage: DOSE: UNK
     Route: 048
  5. KALCIPOS [Concomitant]
     Dosage: DOSE: UNK
     Route: 048

REACTIONS (2)
  - MALIGNANT URINARY TRACT NEOPLASM [None]
  - RENAL CANCER [None]
